FAERS Safety Report 7353044-4 (Version None)
Quarter: 2011Q1

REPORT INFORMATION
  Report Type: 
  Country: None (occurrence: None)
  Receive Date: 20110315
  Receipt Date: 20110310
  Transmission Date: 20110831
  Serious: Yes (Hospitalization)
  Sender: FDA-Public Use
  Company Number: B0693700A

PATIENT
  Sex: Male

DRUGS (14)
  1. SOLUPRED [Concomitant]
     Route: 065
     Dates: start: 20101110
  2. FORTZAAR [Concomitant]
     Dosage: 1UNIT PER DAY
     Route: 048
     Dates: start: 20060101, end: 20101228
  3. AMLOR [Concomitant]
     Route: 065
  4. EPIVIR [Concomitant]
     Indication: HIV INFECTION
     Route: 048
  5. NORVIR [Concomitant]
     Indication: HIV INFECTION
     Route: 048
  6. CRESTOR [Concomitant]
     Route: 048
  7. INNOHEP [Concomitant]
     Dosage: .9ML SINGLE DOSE
     Route: 058
     Dates: start: 20101210, end: 20101228
  8. CALCIPARINE [Concomitant]
     Route: 065
  9. AUGMENTIN [Suspect]
     Indication: BRONCHITIS
     Route: 048
     Dates: start: 20101220, end: 20101228
  10. TRUVADA [Suspect]
     Indication: HIV INFECTION
     Dosage: 1TAB PER DAY
     Route: 048
     Dates: start: 20101214, end: 20101221
  11. ABACAVIR [Concomitant]
     Indication: HIV INFECTION
     Route: 048
  12. NASACORT [Concomitant]
     Route: 065
     Dates: start: 20101110
  13. REYATAZ [Concomitant]
     Indication: HIV INFECTION
     Route: 048
  14. LASIX [Concomitant]
     Route: 065
     Dates: start: 20101201

REACTIONS (2)
  - RENAL FAILURE [None]
  - OEDEMA PERIPHERAL [None]
